FAERS Safety Report 9968290 (Version 1)
Quarter: 2014Q1

REPORT INFORMATION
  Report Type: Report from Study
  Country: US (occurrence: US)
  Receive Date: 20140306
  Receipt Date: 20140306
  Transmission Date: 20141002
  Serious: No
  Sender: FDA-Public Use
  Company Number: US-ABBVIE-13P-163-1143008-00

PATIENT
  Age: 61 Year
  Sex: Female

DRUGS (11)
  1. HUMIRA [Suspect]
     Indication: COLITIS ULCERATIVE
     Dates: start: 20130506
  2. HUMIRA [Suspect]
  3. LIBRAX [Concomitant]
     Indication: GASTRIC HYPOMOTILITY
  4. XANAX [Concomitant]
     Indication: ANXIETY
     Dosage: 1/2 TO 1 TAB 3 TIMES DAILY AS NEEDED
  5. TRAMADOL [Concomitant]
     Indication: BACK PAIN
     Dosage: AT BEDTIME
  6. TYLENOL [Concomitant]
     Indication: HEADACHE
  7. MERCAPTOPURINE [Concomitant]
     Indication: COLITIS ULCERATIVE
  8. MERCAPTOPURINE [Concomitant]
  9. MERCAPTOPURINE [Concomitant]
  10. PREDNISONE [Concomitant]
     Indication: COLITIS ULCERATIVE
  11. PREDNISONE [Concomitant]
     Dosage: 10-20MG DAILY

REACTIONS (3)
  - Rectal haemorrhage [Not Recovered/Not Resolved]
  - Drug ineffective [Not Recovered/Not Resolved]
  - Drug effect decreased [Not Recovered/Not Resolved]
